FAERS Safety Report 21589604 (Version 1)
Quarter: 2022Q4

REPORT INFORMATION
  Report Type: Spontaneous
  Country: DE (occurrence: DE)
  Receive Date: 20221114
  Receipt Date: 20221114
  Transmission Date: 20230112
  Serious: Yes (Hospitalization, Other)
  Sender: FDA-Public Use
  Company Number: None

PATIENT
  Age: 76 Year
  Sex: Male
  Weight: 131 kg

DRUGS (12)
  1. APIXABAN [Suspect]
     Active Substance: APIXABAN
     Indication: Product used for unknown indication
     Dosage: 2.5 MG, 1-0-1-0
  2. MIRTAZAPINE [Concomitant]
     Active Substance: MIRTAZAPINE
     Dosage: 15 MG, 0-0-0-1
  3. CHOLECALCIFEROL [Concomitant]
     Active Substance: CHOLECALCIFEROL
     Dosage: 1000 IU, SCHEME
  4. ATORVASTATIN [Concomitant]
     Active Substance: ATORVASTATIN
     Dosage: 80 MG, 0-0-1-0
  5. ALLOPURINOL [Concomitant]
     Active Substance: ALLOPURINOL
     Dosage: 100 MG, 0-0-1-0
  6. PANTOPRAZOLE [Concomitant]
     Active Substance: PANTOPRAZOLE
     Dosage: 40 MG, 1-0-0-0
  7. SERTRALINE [Concomitant]
     Active Substance: SERTRALINE HYDROCHLORIDE
     Dosage: 50 MG, 1-0-0-0
  8. EZETIMIBE [Concomitant]
     Active Substance: EZETIMIBE
     Dosage: 10 MG, 0-0-1-0
  9. POTASSIUM [Concomitant]
     Active Substance: POTASSIUM
     Dosage: 1-1-1-0
  10. TORSEMIDE [Concomitant]
     Active Substance: TORSEMIDE
     Dosage: 100 MG, 0.5-0-0-0
  11. INSULIN NOS [Concomitant]
     Active Substance: INSULIN NOS
     Dosage: SCHEME
  12. LEVOTHYROXINE SODIUM [Concomitant]
     Active Substance: LEVOTHYROXINE SODIUM
     Dosage: 125 MICROGRAM, 1-0-0-0

REACTIONS (14)
  - Renal impairment [Unknown]
  - Abdominal pain [Unknown]
  - Shock haemorrhagic [Unknown]
  - Anaemia [Unknown]
  - Arrhythmia [Unknown]
  - Systemic infection [Unknown]
  - Oedema peripheral [Unknown]
  - Abdominal pain lower [Unknown]
  - Weight increased [Unknown]
  - General physical health deterioration [Unknown]
  - Internal haemorrhage [Unknown]
  - Syncope [Unknown]
  - Pallor [Unknown]
  - Atrial fibrillation [Unknown]
